FAERS Safety Report 11653502 (Version 2)
Quarter: 2016Q1

REPORT INFORMATION
  Report Type: Report from Study
  Country: US (occurrence: US)
  Receive Date: 20151022
  Receipt Date: 20160223
  Transmission Date: 20160525
  Serious: No
  Sender: FDA-Public Use
  Company Number: US-OTSUKA-2015_001421

PATIENT
  Age: 44 Year
  Sex: Female
  Weight: 58.4 kg

DRUGS (7)
  1. MULTIVITAMINS [Concomitant]
     Active Substance: VITAMINS
     Indication: PROPHYLAXIS
     Dosage: 1 DF, QD
     Route: 048
     Dates: start: 2011
  2. TOLVAPTAN [Suspect]
     Active Substance: TOLVAPTAN
     Indication: CONGENITAL CYSTIC KIDNEY DISEASE
     Dosage: 45 MG, QD (IN MORNING)
     Route: 048
     Dates: start: 20150421, end: 20150423
  3. TOLVAPTAN [Suspect]
     Active Substance: TOLVAPTAN
     Dosage: 15 MG, QD (IN EVENING)
     Route: 048
     Dates: start: 20150421, end: 20150423
  4. TOLVAPTAN [Suspect]
     Active Substance: TOLVAPTAN
     Dosage: 15 MG, QD (IN EVENING)
     Route: 048
     Dates: start: 20150417, end: 20150420
  5. TOLVAPTAN [Suspect]
     Active Substance: TOLVAPTAN
     Dosage: 30 MG, QD (IN MORNING)
     Route: 048
     Dates: start: 20150417, end: 20150420
  6. LISINOPRIL. [Concomitant]
     Active Substance: LISINOPRIL
     Indication: HYPERTENSION
     Dosage: 5 MG, QD
     Route: 048
     Dates: start: 2006
  7. ZYRTEC [Concomitant]
     Active Substance: CETIRIZINE HYDROCHLORIDE
     Indication: RHINITIS ALLERGIC
     Dosage: 10 MG, QD
     Route: 048
     Dates: start: 20140509

REACTIONS (1)
  - Hypoaesthesia [Recovered/Resolved]

NARRATIVE: CASE EVENT DATE: 20150422
